FAERS Safety Report 25503070 (Version 1)
Quarter: 2025Q3

REPORT INFORMATION
  Report Type: Spontaneous
  Country: US (occurrence: US)
  Receive Date: 20250702
  Receipt Date: 20250702
  Transmission Date: 20251020
  Serious: No
  Sender: SUNOVION
  Company Number: US-SMPA-2025SPA007222AA

PATIENT

DRUGS (1)
  1. GEMTESA [Suspect]
     Active Substance: VIBEGRON
     Indication: Hypertonic bladder
     Route: 048

REACTIONS (5)
  - Genital pain [Unknown]
  - Genital burning sensation [Unknown]
  - Nocturia [Unknown]
  - Sleep disorder [Unknown]
  - Therapy interrupted [Unknown]
